FAERS Safety Report 16823193 (Version 1)
Quarter: 2019Q3

REPORT INFORMATION
  Report Type: Spontaneous
  Country: GB (occurrence: GB)
  Receive Date: 20190918
  Receipt Date: 20190918
  Transmission Date: 20191005
  Serious: Yes (Other)
  Sender: FDA-Public Use
  Company Number: GB-009507513-1909GBR005985

PATIENT
  Age: 30 Year
  Sex: Female
  Weight: 83.91 kg

DRUGS (1)
  1. MOMETASONE FUROATE. [Suspect]
     Active Substance: MOMETASONE FUROATE
     Indication: ECZEMA
     Dosage: DIRECTED AS 4 DAYS THEN STOP HOWEVER STEROID REBOUND MADE ME NEED TO KEEP ON USING THE CREAM
     Route: 061

REACTIONS (6)
  - Rebound eczema [Unknown]
  - Withdrawal syndrome [Unknown]
  - Pruritus [Not Recovered/Not Resolved]
  - Erythema [Not Recovered/Not Resolved]
  - Skin swelling [Not Recovered/Not Resolved]
  - Skin burning sensation [Not Recovered/Not Resolved]
